FAERS Safety Report 16160276 (Version 1)
Quarter: 2019Q2

REPORT INFORMATION
  Report Type: Spontaneous
  Country: US (occurrence: US)
  Receive Date: 20190404
  Receipt Date: 20190404
  Transmission Date: 20190711
  Serious: No
  Sender: FDA-Public Use
  Company Number: US-CELGENEUS-USA-20190400666

PATIENT
  Age: 58 Year
  Sex: Male
  Weight: 118 kg

DRUGS (1)
  1. OTEZLA [Suspect]
     Active Substance: APREMILAST
     Indication: PSORIASIS
     Dosage: STARTER PACK
     Route: 048
     Dates: start: 20190320, end: 2019

REACTIONS (1)
  - Myalgia [Recovering/Resolving]

NARRATIVE: CASE EVENT DATE: 20190327
